FAERS Safety Report 11847755 (Version 1)
Quarter: 2015Q4

REPORT INFORMATION
  Report Type: Spontaneous
  Country: US (occurrence: US)
  Receive Date: 20151217
  Receipt Date: 20151217
  Transmission Date: 20160305
  Serious: No
  Sender: FDA-Public Use
  Company Number: US-GLAXOSMITHKLINE-US2015153887

PATIENT
  Age: 34 Year
  Sex: Male

DRUGS (1)
  1. TANZEUM [Suspect]
     Active Substance: ALBIGLUTIDE
     Indication: DIABETES MELLITUS
     Dosage: 30 MG, WE
     Dates: start: 20150501

REACTIONS (2)
  - Injection site pruritus [Recovering/Resolving]
  - Injection site urticaria [Recovering/Resolving]

NARRATIVE: CASE EVENT DATE: 20150501
